FAERS Safety Report 23887439 (Version 1)
Quarter: 2024Q2

REPORT INFORMATION
  Report Type: Spontaneous
  Country: CZ (occurrence: CZ)
  Receive Date: 20240523
  Receipt Date: 20240523
  Transmission Date: 20240716
  Serious: Yes (Life-Threatening)
  Sender: FDA-Public Use
  Company Number: CZ-OPELLA-2024OHG011948

PATIENT
  Age: 14 Year
  Sex: Female

DRUGS (1)
  1. IBUPROFEN [Suspect]
     Active Substance: IBUPROFEN
     Indication: Product used for unknown indication
     Dosage: 46 DOSAGE FORM, 1 TOTAL
     Route: 048

REACTIONS (3)
  - Toxicity to various agents [Unknown]
  - Intentional overdose [Unknown]
  - Overdose [Unknown]
